FAERS Safety Report 25565246 (Version 1)
Quarter: 2025Q3

REPORT INFORMATION
  Report Type: Spontaneous
  Country: US (occurrence: US)
  Receive Date: 20250716
  Receipt Date: 20250716
  Transmission Date: 20251020
  Serious: Yes (Other)
  Sender: NOVO NORDISK
  Company Number: US-NOVOPROD-1297585

PATIENT
  Age: 52 Year
  Sex: Female

DRUGS (6)
  1. OZEMPIC [Suspect]
     Active Substance: SEMAGLUTIDE
     Indication: Diabetes mellitus
     Route: 058
  2. JYNARQUE [Suspect]
     Active Substance: TOLVAPTAN
     Indication: Congenital cystic kidney disease
     Route: 048
     Dates: start: 20230919
  3. JYNARQUE [Suspect]
     Active Substance: TOLVAPTAN
     Route: 048
  4. JYNARQUE [Suspect]
     Active Substance: TOLVAPTAN
     Route: 048
     Dates: start: 20240920
  5. TRULICITY [Suspect]
     Active Substance: DULAGLUTIDE
     Indication: Diabetes mellitus
  6. MOUNJARO [Suspect]
     Active Substance: TIRZEPATIDE
     Indication: Diabetes mellitus
     Route: 058

REACTIONS (4)
  - Renal impairment [Unknown]
  - Liver function test increased [Unknown]
  - Feeding disorder [Recovering/Resolving]
  - Nausea [Recovering/Resolving]
